FAERS Safety Report 8340869-1 (Version None)
Quarter: 2012Q1

REPORT INFORMATION
  Report Type: 
  Country: None (occurrence: None)
  Receive Date: 20120330
  Receipt Date: 20091109
  Transmission Date: 20120608
  Serious: Yes (Other)
  Sender: FDA-Public Use
  Company Number: PHEH2009US15383

PATIENT
  Sex: Female

DRUGS (2)
  1. LESCOL [Suspect]
     Dosage: 40 MG, QD
  2. ATENOLOL [Suspect]
     Dosage: 50 MG, QD

REACTIONS (2)
  - DRUG INTERACTION [None]
  - DEPRESSION [None]
